FAERS Safety Report 5345529-7 (Version None)
Quarter: 2007Q2

REPORT INFORMATION
  Report Type: 
  Country: None (occurrence: None)
  Receive Date: 20070601
  Receipt Date: 20070601
  Transmission Date: 20071010
  Serious: Yes (Other)
  Sender: FDA-Public Use
  Company Number: None

PATIENT
  Age: 35 Year
  Sex: Female
  Weight: 72.5755 kg

DRUGS (1)
  1. ZYCAM [Suspect]

REACTIONS (4)
  - AGEUSIA [None]
  - ANOSMIA [None]
  - HEADACHE [None]
  - NECK PAIN [None]
